FAERS Safety Report 6850304-8 (Version None)
Quarter: 2010Q3

REPORT INFORMATION
  Report Type: 
  Country: None (occurrence: None)
  Receive Date: 20100716
  Receipt Date: 20071015
  Transmission Date: 20110219
  Serious: No
  Sender: FDA-Public Use
  Company Number: US-PFIZER INC-2007086370

PATIENT
  Sex: Male
  Weight: 97.727 kg

DRUGS (5)
  1. CHANTIX [Suspect]
     Indication: SMOKING CESSATION THERAPY
     Route: 048
     Dates: start: 20071013, end: 20071015
  2. LUNESTA [Concomitant]
     Indication: SLEEP DISORDER
     Route: 048
  3. AMITRIPTYLINE HYDROCHLORIDE [Concomitant]
     Route: 048
  4. TOPAMAX [Concomitant]
     Indication: NERVOUS SYSTEM DISORDER
     Route: 048
  5. HYDROMORPHONE [Concomitant]
     Route: 048

REACTIONS (6)
  - ABDOMINAL PAIN UPPER [None]
  - ABNORMAL DREAMS [None]
  - DIARRHOEA [None]
  - FLATULENCE [None]
  - MALAISE [None]
  - NAUSEA [None]
